FAERS Safety Report 13041495 (Version 1)
Quarter: 2016Q4

REPORT INFORMATION
  Report Type: Spontaneous
  Country: US (occurrence: US)
  Receive Date: 20161219
  Receipt Date: 20161219
  Transmission Date: 20170207
  Serious: No
  Sender: FDA-Public Use
  Company Number: US-ROCHE-1204354

PATIENT
  Sex: Female

DRUGS (1)
  1. ZELBORAF [Suspect]
     Active Substance: VEMURAFENIB
     Indication: METASTATIC MALIGNANT MELANOMA
     Route: 065
     Dates: start: 20121128

REACTIONS (7)
  - Somnolence [Unknown]
  - Eating disorder [Unknown]
  - Rash [Unknown]
  - Dysphagia [Unknown]
  - Dementia [Not Recovered/Not Resolved]
  - Weight decreased [Unknown]
  - Fungal infection [Unknown]
